FAERS Safety Report 8951028 (Version 1)
Quarter: 2012Q4

REPORT INFORMATION
  Report Type: Spontaneous
  Country: DK (occurrence: None)
  Receive Date: 20121129
  Receipt Date: 20121129
  Transmission Date: 20130627
  Serious: Yes (Hospitalization)
  Sender: FDA-Public Use
  Company Number: 2012MA013596

PATIENT
  Age: 83 Year
  Sex: Male

DRUGS (1)
  1. TEMAZEPAM [Suspect]

REACTIONS (8)
  - Balance disorder [None]
  - Coordination abnormal [None]
  - Disturbance in attention [None]
  - Emotional disorder [None]
  - Incontinence [None]
  - Aggression [None]
  - Abnormal behaviour [None]
  - Off label use [None]
